FAERS Safety Report 5603245-8 (Version None)
Quarter: 2008Q1

REPORT INFORMATION
  Report Type: 
  Country: None (occurrence: None)
  Receive Date: 20080125
  Receipt Date: 20080114
  Transmission Date: 20080703
  Serious: Yes (Hospitalization)
  Sender: FDA-Public Use
  Company Number: BE-PFIZER INC-2008005009

PATIENT
  Sex: Male

DRUGS (5)
  1. LYRICA [Suspect]
  2. DITROPAN [Concomitant]
  3. REDOMEX [Concomitant]
  4. BACLOFEN [Concomitant]
  5. FLUPENTIXOL [Concomitant]

REACTIONS (1)
  - PRURIGO [None]
